FAERS Safety Report 7344343-0 (Version None)
Quarter: 2011Q1

REPORT INFORMATION
  Report Type: 
  Country: None (occurrence: None)
  Receive Date: 20110310
  Receipt Date: 20101203
  Transmission Date: 20110831
  Serious: No
  Sender: FDA-Public Use
  Company Number: A0897636A

PATIENT
  Age: 56 Year
  Sex: Female

DRUGS (2)
  1. NICORETTE [Suspect]
  2. NICORETTE [Suspect]

REACTIONS (4)
  - INTENTIONAL DRUG MISUSE [None]
  - CHOLINERGIC SYNDROME [None]
  - MALAISE [None]
  - NICOTINE DEPENDENCE [None]
